FAERS Safety Report 8358628-2 (Version None)
Quarter: 2012Q2

REPORT INFORMATION
  Report Type: 
  Country: None (occurrence: None)
  Receive Date: 20120514
  Receipt Date: 20120508
  Transmission Date: 20120825
  Serious: Yes (Other)
  Sender: FDA-Public Use
  Company Number: US-ROCHE-1064094

PATIENT
  Sex: Female

DRUGS (2)
  1. PLAQUENIL [Suspect]
     Indication: PRODUCT USED FOR UNKNOWN INDICATION
  2. CELLCEPT [Suspect]
     Indication: ENCEPHALITIS

REACTIONS (4)
  - WEIGHT DECREASED [None]
  - DRUG INEFFECTIVE [None]
  - WEIGHT INCREASED [None]
  - LIPOSARCOMA [None]
